FAERS Safety Report 7981263-2 (Version None)
Quarter: 2011Q4

REPORT INFORMATION
  Report Type: 
  Country: None (occurrence: None)
  Receive Date: 20111215
  Receipt Date: 20111213
  Transmission Date: 20120403
  Serious: No
  Sender: FDA-Public Use
  Company Number: US-PFIZER INC-2011273698

PATIENT
  Sex: Male

DRUGS (2)
  1. NIACIN [Concomitant]
     Dosage: 600 MG, UNK
     Route: 048
     Dates: end: 20111107
  2. CELEBREX [Suspect]
     Indication: DRUG SCREEN
     Dosage: 200 MG, 2X/DAY
     Route: 048
     Dates: start: 20111103

REACTIONS (1)
  - LIP PAIN [None]
